FAERS Safety Report 6612695-2 (Version None)
Quarter: 2010Q1

REPORT INFORMATION
  Report Type: 
  Country: None (occurrence: None)
  Receive Date: 20100303
  Receipt Date: 20100218
  Transmission Date: 20100710
  Serious: Yes (Disabling, Other)
  Sender: FDA-Public Use
  Company Number: US-PFIZER INC-2010003029

PATIENT
  Sex: Female
  Weight: 61.224 kg

DRUGS (7)
  1. LIPITOR [Suspect]
     Indication: BLOOD CHOLESTEROL INCREASED
     Dosage: 80 MG, 1X/DAY
     Route: 048
  2. LIPITOR [Suspect]
     Dosage: 40 MG, 1X/DAY
     Dates: start: 19960101
  3. LIPITOR [Suspect]
     Dosage: 80 MG, UNK
     Dates: start: 20050101
  4. TOPROL-XL [Concomitant]
     Dosage: UNK
  5. CYMBALTA [Concomitant]
     Dosage: UNK
  6. PRILOSEC [Concomitant]
     Dosage: UNK
  7. ISOSORBIDE [Concomitant]
     Dosage: UNK

REACTIONS (15)
  - BURNING SENSATION [None]
  - CHOLECYSTECTOMY [None]
  - CONVERSION DISORDER [None]
  - COORDINATION ABNORMAL [None]
  - DEMENTIA [None]
  - DEPRESSION [None]
  - DISORIENTATION [None]
  - GAIT DISTURBANCE [None]
  - GRIP STRENGTH DECREASED [None]
  - HYPOAESTHESIA [None]
  - MEMORY IMPAIRMENT [None]
  - MUSCLE TWITCHING [None]
  - MYOCARDIAL INFARCTION [None]
  - NERVOUS SYSTEM DISORDER [None]
  - PSEUDODEMENTIA [None]
